FAERS Safety Report 24656372 (Version 1)
Quarter: 2024Q4

REPORT INFORMATION
  Report Type: Spontaneous
  Country: US (occurrence: US)
  Receive Date: 20241124
  Receipt Date: 20241124
  Transmission Date: 20250115
  Serious: No
  Sender: MERCK
  Company Number: US-009507513-2411USA007723

PATIENT
  Age: 76 Year
  Sex: Female

DRUGS (3)
  1. KEYTRUDA [Suspect]
     Active Substance: PEMBROLIZUMAB
     Indication: Ovarian cancer
     Dosage: UNK
     Route: 042
     Dates: start: 20241028
  2. LISINOPRIL [Concomitant]
     Active Substance: LISINOPRIL
     Dosage: UNK
  3. CYTOXAN [Concomitant]
     Active Substance: CYCLOPHOSPHAMIDE
     Dosage: UNK

REACTIONS (3)
  - Laboratory test abnormal [Not Recovered/Not Resolved]
  - Blood alkaline phosphatase increased [Not Recovered/Not Resolved]
  - Alanine aminotransferase increased [Not Recovered/Not Resolved]

NARRATIVE: CASE EVENT DATE: 20241117
